FAERS Safety Report 23527776 (Version 2)
Quarter: 2024Q1

REPORT INFORMATION
  Report Type: Spontaneous
  Country: BG (occurrence: BG)
  Receive Date: 20240215
  Receipt Date: 20240219
  Transmission Date: 20240410
  Serious: Yes (Hospitalization, Other)
  Sender: FDA-Public Use
  Company Number: None

PATIENT
  Age: 51 Year
  Sex: Male

DRUGS (8)
  1. VALSARTAN [Suspect]
     Active Substance: VALSARTAN
     Indication: Hypertension
     Dosage: 160 MG. UNK
     Dates: start: 20230401
  2. MOXONIDINE [Suspect]
     Active Substance: MOXONIDINE
     Indication: Hypertension
     Dosage: 0.2 MG,  UNK
     Dates: start: 2021, end: 20230331
  3. HYDROCHLOROTHIAZIDE [Suspect]
     Active Substance: HYDROCHLOROTHIAZIDE
     Indication: Hypertension
     Dosage: ? TAB. OF 25MG
     Dates: start: 2021, end: 20230331
  4. HYDROCHLOROTHIAZIDE [Suspect]
     Active Substance: HYDROCHLOROTHIAZIDE
     Dosage: ? TAB. OF 25MG EVERY OTHER DAY
     Dates: start: 20230401
  5. RANITIDINE [Suspect]
     Active Substance: RANITIDINE
     Indication: Duodenal ulcer
     Dosage: UNK,  UNK
  6. RANITIDINE [Suspect]
     Active Substance: RANITIDINE
     Indication: Gastritis
  7. RILMENIDINE [Suspect]
     Active Substance: RILMENIDINE
     Indication: Hypertension
     Dosage: 1 MG,  UNK
     Dates: start: 20230104
  8. AMLODIPINE [Suspect]
     Active Substance: AMLODIPINE BESYLATE
     Indication: Hypertension
     Dosage: 10 MG,  UNK
     Dates: start: 2021, end: 20230331

REACTIONS (3)
  - Superficial spreading melanoma stage I [Recovering/Resolving]
  - Dysplastic naevus [Recovering/Resolving]
  - Manufacturing materials contamination [Recovering/Resolving]

NARRATIVE: CASE EVENT DATE: 20220101
